FAERS Safety Report 12991515 (Version 1)
Quarter: 2016Q4

REPORT INFORMATION
  Report Type: Spontaneous
  Country: GB (occurrence: GB)
  Receive Date: 20161201
  Receipt Date: 20161201
  Transmission Date: 20170207
  Serious: Yes (Death, Hospitalization)
  Sender: FDA-Public Use
  Company Number: GB-PFIZER INC-2016555956

PATIENT
  Age: 40 Year
  Sex: Female

DRUGS (2)
  1. TARGOCID [Suspect]
     Active Substance: TEICOPLANIN
     Indication: PROPHYLAXIS
     Dosage: UNK
     Route: 042
  2. GENTAMICIN SULFATE. [Suspect]
     Active Substance: GENTAMICIN SULFATE
     Dosage: UNK
     Route: 065

REACTIONS (5)
  - Flushing [Fatal]
  - Bradycardia [Fatal]
  - Anaphylactic reaction [Fatal]
  - Hypotension [Fatal]
  - Rash [Fatal]

NARRATIVE: CASE EVENT DATE: 20121216
